FAERS Safety Report 16046588 (Version 5)
Quarter: 2019Q2

REPORT INFORMATION
  Report Type: Spontaneous
  Country: GB (occurrence: GB)
  Receive Date: 20190307
  Receipt Date: 20190628
  Transmission Date: 20190711
  Serious: Yes (Hospitalization, Other)
  Sender: FDA-Public Use
  Company Number: GB-SA-2019SA058375

PATIENT
  Sex: Female

DRUGS (2)
  1. PLAVIX [Suspect]
     Active Substance: CLOPIDOGREL BISULFATE
     Dosage: UNK
     Route: 065
  2. PLAVIX [Suspect]
     Active Substance: CLOPIDOGREL BISULFATE
     Dosage: UNK UNK, UNK
     Route: 065
     Dates: start: 1999

REACTIONS (10)
  - Pain [Unknown]
  - Abdominal discomfort [Unknown]
  - Nausea [Unknown]
  - Thrombosis [Unknown]
  - Feeling abnormal [Unknown]
  - Contusion [Unknown]
  - Unevaluable event [Unknown]
  - Urine output increased [Unknown]
  - Unevaluable event [Unknown]
  - Pain in extremity [Unknown]

NARRATIVE: CASE EVENT DATE: 201902
